FAERS Safety Report 8290876 (Version 2)
Quarter: 2013Q2

REPORT INFORMATION
  Report Type: Spontaneous
  Country: US (occurrence: None)
  Receive Date: 20111122
  Receipt Date: 20120703
  Transmission Date: 20140414
  Serious: Yes (Other)
  Sender: FDA-Public Use
  Company Number: PHEH2011US00880

PATIENT
  Age: 63 Year
  Sex: Male

DRUGS (1)
  1. GILENYA [Suspect]
     Indication: MULTIPLE SCLEROSIS
     Dosage: 0.5 MG, DAILY, ORAL
     Route: 048
     Dates: start: 20120525, end: 201201

REACTIONS (9)
  - INSOMNIA [None]
  - MUSCULAR WEAKNESS [None]
  - FATIGUE [None]
  - HEADACHE [None]
  - DIZZINESS [None]
  - BACK PAIN [None]
  - Gait disturbance [None]
  - Multiple sclerosis relapse [None]
  - Arthralgia [None]
